FAERS Safety Report 4793768-6 (Version None)
Quarter: 2005Q4

REPORT INFORMATION
  Report Type: 
  Country: None (occurrence: None)
  Receive Date: 20051011
  Receipt Date: 20050929
  Transmission Date: 20060501
  Serious: Yes (Hospitalization)
  Sender: FDA-Public Use
  Company Number: JP-JNJFOC-20050704509

PATIENT
  Sex: Female
  Weight: 50 kg

DRUGS (13)
  1. REMICADE [Suspect]
     Route: 042
  2. REMICADE [Suspect]
     Route: 042
  3. REMICADE [Suspect]
     Indication: RHEUMATOID ARTHRITIS
     Route: 042
  4. METOLATE [Suspect]
     Route: 048
     Dates: start: 20030701, end: 20050710
  5. METOLATE [Suspect]
     Route: 048
     Dates: start: 20030701, end: 20050710
  6. METOLATE [Suspect]
     Indication: RHEUMATOID ARTHRITIS
     Route: 048
     Dates: start: 20030701, end: 20050710
  7. PREDONINE [Suspect]
     Indication: RHEUMATOID ARTHRITIS
     Dosage: 7.5 MG, 5 MG - EVERY TWO DAYS
     Route: 048
  8. RIMATIL [Concomitant]
     Indication: RHEUMATOID ARTHRITIS
     Route: 048
  9. LOXONIN [Concomitant]
     Indication: RHEUMATOID ARTHRITIS
     Route: 048
  10. TSUMURA HOCHU-EKKI-TO [Concomitant]
     Indication: RHEUMATOID ARTHRITIS
     Route: 048
  11. SELBEX [Concomitant]
     Indication: GASTROINTESTINAL DISORDER THERAPY
     Route: 048
  12. RHYTHMY [Concomitant]
     Indication: INSOMNIA
     Route: 048
  13. FOLIAMIN [Concomitant]
     Route: 048

REACTIONS (2)
  - FACIAL PALSY [None]
  - HERPES ZOSTER [None]
